FAERS Safety Report 12690079 (Version 4)
Quarter: 2016Q4

REPORT INFORMATION
  Report Type: Report from Study
  Country: JP (occurrence: JP)
  Receive Date: 20160826
  Receipt Date: 20161114
  Transmission Date: 20170207
  Serious: Yes (Death, Hospitalization)
  Sender: FDA-Public Use
  Company Number: JP-ASTRAZENECA-2016SE72473

PATIENT
  Age: 86 Year
  Sex: Female
  Weight: 37 kg

DRUGS (2)
  1. TAGRISSO [Suspect]
     Active Substance: OSIMERTINIB
     Indication: NON-SMALL CELL LUNG CANCER
     Route: 048
     Dates: start: 20150524, end: 20160621
  2. TAGRISSO [Suspect]
     Active Substance: OSIMERTINIB
     Indication: NON-SMALL CELL LUNG CANCER
     Route: 048
     Dates: start: 20160622

REACTIONS (8)
  - Pulmonary embolism [Recovered/Resolved]
  - Platelet count decreased [Recovering/Resolving]
  - Disseminated intravascular coagulation [Unknown]
  - Death [Fatal]
  - Skin disorder [Recovering/Resolving]
  - Embolism [Recovered/Resolved]
  - Deep vein thrombosis [Unknown]
  - Diarrhoea [Not Recovered/Not Resolved]

NARRATIVE: CASE EVENT DATE: 20160622
